FAERS Safety Report 5945700-7 (Version None)
Quarter: 2008Q4

REPORT INFORMATION
  Report Type: 
  Country: None (occurrence: None)
  Receive Date: 20081104
  Receipt Date: 20081028
  Transmission Date: 20090506
  Serious: Yes (Hospitalization)
  Sender: FDA-Public Use
  Company Number: 2008SP018229

PATIENT
  Age: 3 Year
  Sex: Female

DRUGS (2)
  1. DESLORATADINE [Suspect]
     Indication: RHINITIS ALLERGIC
     Dosage: 2.5 ML;QD;PO
     Route: 048
     Dates: start: 20080701, end: 20080701
  2. DESLORATADINE [Suspect]
     Indication: RHINITIS ALLERGIC
     Dosage: 2.5 ML;QD;PO
     Route: 048
     Dates: start: 20080901, end: 20080903

REACTIONS (6)
  - ABNORMAL BEHAVIOUR [None]
  - AGITATION [None]
  - HALLUCINATION, VISUAL [None]
  - MYDRIASIS [None]
  - SINUS CONGESTION [None]
  - VOMITING [None]
